FAERS Safety Report 9510149 (Version 2)
Quarter: 2013Q3

REPORT INFORMATION
  Report Type: Spontaneous
  Country: US (occurrence: US)
  Receive Date: 20130909
  Receipt Date: 20130909
  Transmission Date: 20140515
  Serious: Yes (Other)
  Sender: FDA-Public Use
  Company Number: US-BRISTOL-MYERS SQUIBB COMPANY-18738070

PATIENT
  Age: 51 Year
  Sex: Female
  Weight: 63.49 kg

DRUGS (7)
  1. ABILIFY [Suspect]
     Indication: SCHIZOPHRENIA
  2. GEODON [Suspect]
     Indication: SCHIZOPHRENIA
     Dates: start: 2008
  3. ZYPREXA [Suspect]
     Indication: SCHIZOPHRENIA
  4. RISPERDAL [Suspect]
     Indication: SCHIZOPHRENIA
  5. SEROQUEL [Suspect]
     Indication: SCHIZOPHRENIA
  6. TOPROL XL [Concomitant]
     Indication: HYPERTENSION
  7. NORVASC [Concomitant]
     Indication: HYPERTENSION

REACTIONS (3)
  - Weight increased [Unknown]
  - Blood cholesterol increased [Unknown]
  - Anxiety [Not Recovered/Not Resolved]
